FAERS Safety Report 6131909-9 (Version None)
Quarter: 2009Q1

REPORT INFORMATION
  Report Type: 
  Country: None (occurrence: None)
  Receive Date: 20090325
  Receipt Date: 20090303
  Transmission Date: 20090719
  Serious: Yes (Other)
  Sender: FDA-Public Use
  Company Number: US-PFIZER INC-2009152972

PATIENT
  Sex: Female
  Weight: 70.306 kg

DRUGS (2)
  1. XALATAN [Suspect]
     Indication: GLAUCOMA
     Dosage: 0.005 %, 1X/DAY
     Route: 047
     Dates: start: 20080303, end: 20090112
  2. XALATAN [Suspect]
     Indication: OPEN ANGLE GLAUCOMA

REACTIONS (8)
  - DRUG HYPERSENSITIVITY [None]
  - DRY EYE [None]
  - DRY MOUTH [None]
  - GLAUCOMA [None]
  - INSOMNIA [None]
  - NASAL DRYNESS [None]
  - RHINORRHOEA [None]
  - TONGUE DRY [None]
